FAERS Safety Report 7410078-9 (Version None)
Quarter: 2011Q2

REPORT INFORMATION
  Report Type: 
  Country: None (occurrence: None)
  Receive Date: 20110412
  Receipt Date: 20110401
  Transmission Date: 20111010
  Serious: Yes (Life-Threatening, Hospitalization)
  Sender: FDA-Public Use
  Company Number: FR-PFIZER INC-FR-WYE-G05799910

PATIENT
  Age: 88 Year
  Sex: Female

DRUGS (15)
  1. EFFEXOR XR [Suspect]
     Dosage: 37.5 MG, 1X/DAY
     Route: 048
     Dates: start: 20100113, end: 20100128
  2. PLAVIX [Concomitant]
     Dosage: 75 MG, UNK
  3. FUNGIZONE [Concomitant]
  4. MOTILIUM [Concomitant]
  5. LOVENOX [Concomitant]
  6. EFFEXOR XR [Suspect]
     Dosage: 75 MG, 1X/DAY
     Route: 048
     Dates: start: 20100129, end: 20100208
  7. PRETERAX [Concomitant]
     Dosage: [INDAPAMIDE 2MG/PERINDOPRIL ERBUMINE 0.625MG]
  8. OXYCONTIN [Concomitant]
     Dosage: 10 MG, UNK
  9. TIORFAN [Concomitant]
  10. STAGID [Concomitant]
     Dosage: 700 MG, UNK
  11. KARDEGIC [Concomitant]
     Dosage: 75 MG, UNK
  12. SELOKEN [Concomitant]
     Dosage: 100 MG, UNK
  13. SERESTA [Concomitant]
     Dosage: 50 MG, UNK
  14. LACTEOL [Concomitant]
  15. DALACINE [Suspect]
     Dosage: 300 MG, 2X/DAY
     Route: 048
     Dates: start: 20100103, end: 20100208

REACTIONS (2)
  - BACTERAEMIA [None]
  - AGRANULOCYTOSIS [None]
